FAERS Safety Report 4464576-0 (Version None)
Quarter: 2004Q3

REPORT INFORMATION
  Report Type: 
  Country: None (occurrence: None)
  Receive Date: 20040927
  Receipt Date: 20040915
  Transmission Date: 20050211
  Serious: No
  Sender: FDA-Public Use
  Company Number: 2004UW13782

PATIENT
  Age: 50 Year
  Sex: Female
  Weight: 57 kg

DRUGS (2)
  1. LIDOCAINE HYDROCHLORIDE 2% W/ EPINEPHRINE INJ [Suspect]
     Indication: ARTHROSCOPIC SURGERY
     Dosage: 40 ML PNEU
     Dates: start: 20040601, end: 20040601
  2. ANGIOLYTICS [Concomitant]

REACTIONS (11)
  - CEREBROVASCULAR ACCIDENT [None]
  - COMA [None]
  - DYSPNOEA [None]
  - FEELING OF DESPAIR [None]
  - HEADACHE [None]
  - HYPERTENSIVE CRISIS [None]
  - MEDICATION ERROR [None]
  - OVERDOSE [None]
  - PARAESTHESIA [None]
  - TACHYCARDIA [None]
  - TINNITUS [None]
